FAERS Safety Report 5132556-8 (Version None)
Quarter: 2006Q4

REPORT INFORMATION
  Report Type: 
  Country: None (occurrence: None)
  Receive Date: 20061023
  Receipt Date: 20061018
  Transmission Date: 20070319
  Serious: Yes (Other)
  Sender: FDA-Public Use
  Company Number: US-BRISTOL-MYERS SQUIBB COMPANY-13546882

PATIENT
  Sex: Female

DRUGS (1)
  1. ESTRACE [Suspect]
     Indication: HORMONE REPLACEMENT THERAPY

REACTIONS (1)
  - THYROID CANCER [None]
